FAERS Safety Report 6198886-6 (Version None)
Quarter: 2009Q2

REPORT INFORMATION
  Report Type: 
  Country: None (occurrence: None)
  Receive Date: 20090519
  Receipt Date: 20090519
  Transmission Date: 20091009
  Serious: Yes (Death)
  Sender: FDA-Public Use
  Company Number: None

PATIENT
  Age: 28 Year
  Sex: Male

DRUGS (2)
  1. SEROQUEL [Suspect]
     Dates: start: 20080505, end: 20080508
  2. SEROQUEL [Suspect]
     Dates: start: 20090306, end: 20090312

REACTIONS (4)
  - BIPOLAR DISORDER [None]
  - COMPLETED SUICIDE [None]
  - INTENTIONAL OVERDOSE [None]
  - SUICIDAL IDEATION [None]
